FAERS Safety Report 13459526 (Version 1)
Quarter: 2017Q2

REPORT INFORMATION
  Report Type: Spontaneous
  Country: GB (occurrence: GB)
  Receive Date: 20170419
  Receipt Date: 20170419
  Transmission Date: 20170830
  Serious: Yes (Other)
  Sender: FDA-Public Use
  Company Number: GB-INTERNATIONAL MEDICATION SYSTEMS, LIMITED-1065547

PATIENT

DRUGS (1)
  1. CALCIUM CHLORIDE. [Suspect]
     Active Substance: CALCIUM CHLORIDE
     Indication: BLOOD POTASSIUM INCREASED
     Route: 040

REACTIONS (4)
  - Infusion site extravasation [Unknown]
  - Infusion site necrosis [Unknown]
  - Skin discolouration [Unknown]
  - Infusion site bruising [Unknown]
